FAERS Safety Report 19273249 (Version 1)
Quarter: 2021Q2

REPORT INFORMATION
  Report Type: Spontaneous
  Country: CN (occurrence: CN)
  Receive Date: 20210518
  Receipt Date: 20210518
  Transmission Date: 20210717
  Serious: Yes (Hospitalization)
  Sender: FDA-Public Use
  Company Number: CN-009507513-2105CHN003453

PATIENT
  Age: 23 Year
  Sex: Female
  Weight: 47 kg

DRUGS (3)
  1. TIENAM [Suspect]
     Active Substance: CILASTATIN SODIUM\IMIPENEM
     Indication: MYELOSUPPRESSION
     Dosage: 1 GRAM, TWICE DAILY
     Route: 041
     Dates: start: 20210505, end: 20210505
  2. TIENAM [Suspect]
     Active Substance: CILASTATIN SODIUM\IMIPENEM
     Indication: ANTI-INFECTIVE THERAPY
  3. SODIUM CHLORIDE. [Concomitant]
     Active Substance: SODIUM CHLORIDE
     Indication: ANTI-INFECTIVE THERAPY
     Dosage: 100 ML
     Route: 041
     Dates: start: 20210505

REACTIONS (2)
  - Product use in unapproved indication [Unknown]
  - Rash vesicular [Recovering/Resolving]

NARRATIVE: CASE EVENT DATE: 20210505
